FAERS Safety Report 6275192-2 (Version None)
Quarter: 2009Q3

REPORT INFORMATION
  Report Type: 
  Country: None (occurrence: None)
  Receive Date: 20090721
  Receipt Date: 20090708
  Transmission Date: 20100115
  Serious: Yes (Hospitalization)
  Sender: FDA-Public Use
  Company Number: RU-CELGENEUS-251-21880-09070487

PATIENT
  Sex: Male
  Weight: 56 kg

DRUGS (4)
  1. REVLIMID [Suspect]
     Indication: MULTIPLE MYELOMA
     Route: 048
     Dates: start: 20090529
  2. OMEPRAZOLE [Concomitant]
     Route: 048
     Dates: start: 20090528, end: 20090702
  3. CARDIOMAGNIL [Concomitant]
     Indication: THROMBOSIS PROPHYLAXIS
     Route: 048
     Dates: start: 20090529, end: 20090627
  4. LOPERAMIDE HYDROCHLORIDE [Concomitant]
     Indication: DIARRHOEA
     Route: 048
     Dates: start: 20090603, end: 20090605

REACTIONS (1)
  - TOXIC SKIN ERUPTION [None]
